APPROVED DRUG PRODUCT: CEFUROXIME AND DEXTROSE IN DUPLEX CONTAINER
Active Ingredient: CEFUROXIME SODIUM
Strength: EQ 750MG BASE/VIAL
Dosage Form/Route: INJECTABLE;INJECTION
Application: N050780 | Product #001
Applicant: B BRAUN MEDICAL INC
Approved: Feb 21, 2001 | RLD: Yes | RS: No | Type: DISCN